FAERS Safety Report 6762796-3 (Version None)
Quarter: 2010Q2

REPORT INFORMATION
  Report Type: 
  Country: None (occurrence: None)
  Receive Date: 20100609
  Receipt Date: 20100527
  Transmission Date: 20101027
  Serious: Yes (Death, Life-Threatening, Hospitalization)
  Sender: FDA-Public Use
  Company Number: Z0003159A

PATIENT
  Age: 71 Year
  Sex: Female
  Weight: 62 kg

DRUGS (1)
  1. PAZOPANIB [Suspect]
     Indication: RENAL CELL CARCINOMA
     Dosage: 800MG PER DAY
     Route: 048
     Dates: start: 20091203

REACTIONS (29)
  - ABSCESS SOFT TISSUE [None]
  - ACUTE CORONARY SYNDROME [None]
  - ACUTE MYOCARDIAL INFARCTION [None]
  - BACILLUS INFECTION [None]
  - BACTEROIDES INFECTION [None]
  - CANDIDIASIS [None]
  - DEHYDRATION [None]
  - DIVERTICULAR PERFORATION [None]
  - DYSSTASIA [None]
  - ELECTROCARDIOGRAM CHANGE [None]
  - ENTEROCOCCUS TEST POSITIVE [None]
  - ESCHERICHIA INFECTION [None]
  - FALLOPIAN TUBE DISORDER [None]
  - HYPONATRAEMIA [None]
  - HYPOTENSION [None]
  - INTRACARDIAC THROMBUS [None]
  - KLEBSIELLA INFECTION [None]
  - LEFT VENTRICULAR DYSFUNCTION [None]
  - OEDEMA PERIPHERAL [None]
  - OSTEONECROSIS [None]
  - PAIN IN EXTREMITY [None]
  - PELVIC ABSCESS [None]
  - PROTEUS TEST POSITIVE [None]
  - PULMONARY ARTERY THROMBOSIS [None]
  - PULMONARY EMBOLISM [None]
  - SEPSIS [None]
  - SPINAL CORD COMPRESSION [None]
  - STRESS CARDIOMYOPATHY [None]
  - UTERINE ABSCESS [None]
